FAERS Safety Report 6977081-4 (Version None)
Quarter: 2010Q3

REPORT INFORMATION
  Report Type: 
  Country: None (occurrence: None)
  Receive Date: 20100910
  Receipt Date: 20090504
  Transmission Date: 20110219
  Serious: Yes (Other)
  Sender: FDA-Public Use
  Company Number: PHEH2009US18965

PATIENT
  Sex: Male

DRUGS (2)
  1. AREDIA [Suspect]
     Dosage: 120 MG, UNK
     Dates: start: 19980506, end: 20001012
  2. AREDIA [Suspect]
     Dosage: 90 MG, UNK
     Dates: start: 20001115

REACTIONS (5)
  - BLADDER OBSTRUCTION [None]
  - BLOOD CREATININE INCREASED [None]
  - OSTEOPOROSIS [None]
  - PARAPROTEINAEMIA [None]
  - RENAL IMPAIRMENT [None]
